FAERS Safety Report 4267248-0 (Version None)
Quarter: 2004Q1

REPORT INFORMATION
  Report Type: 
  Country: None (occurrence: None)
  Receive Date: 20040107
  Receipt Date: 20031230
  Transmission Date: 20041129
  Serious: Yes (Hospitalization, Other)
  Sender: FDA-Public Use
  Company Number: HQWYE956430DEC03

PATIENT
  Age: 39 Year
  Sex: Male

DRUGS (8)
  1. RHINADVIL (IBUPROFEN/PSEUDOEPHEDRINE, TABLET [Suspect]
     Indication: PHARYNGITIS
     Dosage: ORAL
     Route: 048
     Dates: start: 20030101
  2. RHINADVIL (IBUPROFEN/PSEUDOEPHEDRINE, TABLET [Suspect]
     Indication: RHINITIS
     Dosage: ORAL
     Route: 048
     Dates: start: 20030101
  3. ACETAMINOPHEN [Suspect]
     Indication: PHARYNGITIS
     Dosage: ORAL
     Route: 048
     Dates: start: 20030101
  4. ACETAMINOPHEN [Suspect]
     Indication: RHINITIS
     Dosage: ORAL
     Route: 048
     Dates: start: 20030101
  5. MUCOLATOR (ACETYLCYSTEINE, ) [Suspect]
     Indication: PHARYNGITIS
     Dosage: ORAL
     Route: 048
     Dates: start: 20030101
  6. MUCOLATOR (ACETYLCYSTEINE, ) [Suspect]
     Indication: RHINITIS
     Dosage: ORAL
     Route: 048
     Dates: start: 20030101
  7. OROPIVALONE (BACITRACIN ZINC/CHLORMETHINE HYDROCHLORIDE/PENTOSAN POLYS [Suspect]
     Indication: PHARYNGITIS
     Dosage: ORAL
     Route: 048
     Dates: start: 20030101
  8. OROPIVALONE (BACITRACIN ZINC/CHLORMETHINE HYDROCHLORIDE/PENTOSAN POLYS [Suspect]
     Indication: RHINITIS
     Dosage: ORAL
     Route: 048
     Dates: start: 20030101

REACTIONS (2)
  - NEPHROTIC SYNDROME [None]
  - PURPURA [None]
